FAERS Safety Report 18321582 (Version 1)
Quarter: 2020Q3

REPORT INFORMATION
  Report Type: Spontaneous
  Country: DK (occurrence: DK)
  Receive Date: 20200928
  Receipt Date: 20200928
  Transmission Date: 20201103
  Serious: Yes (Other)
  Sender: FDA-Public Use
  Company Number: DK-TEVA-2020-DK-1831433

PATIENT
  Age: 53 Year
  Sex: Female

DRUGS (3)
  1. CIRCADIN [Suspect]
     Active Substance: MELATONIN
     Indication: INSOMNIA
     Dosage: UNIT DOSE: 2 MG
     Route: 048
     Dates: start: 20190118, end: 20200728
  2. SERTRALINE [Suspect]
     Active Substance: SERTRALINE HYDROCHLORIDE
     Indication: DEPRESSION
     Dosage: UNIT DOSE: 200MG
     Route: 048
     Dates: start: 20190117, end: 201909
  3. MIRTAZAPIN ^ACTAVIS^ [Suspect]
     Active Substance: MIRTAZAPINE
     Indication: DEPRESSION
     Dosage: UNIT DOSE: 15 MG
     Route: 048
     Dates: start: 20190117, end: 201906

REACTIONS (1)
  - Neuropathy peripheral [Not Recovered/Not Resolved]

NARRATIVE: CASE EVENT DATE: 201903
